FAERS Safety Report 9783034 (Version 1)
Quarter: 2013Q4

REPORT INFORMATION
  Report Type: Report from Study
  Country: GR (occurrence: GR)
  Receive Date: 20131226
  Receipt Date: 20131226
  Transmission Date: 20140711
  Serious: Yes (Death, Other)
  Sender: FDA-Public Use
  Company Number: GR-ASTELLAS-2013US013376

PATIENT
  Sex: Female

DRUGS (2)
  1. ERLOTINIB TABLET [Suspect]
     Indication: ADENOCARCINOMA
     Dosage: UNK
     Route: 065
     Dates: start: 20120207, end: 20121221
  2. GEMCITABINE                        /01215702/ [Concomitant]
     Indication: PRODUCT USED FOR UNKNOWN INDICATION
     Dosage: 4000 MG/M2, 1 TREATMENT CYCLE (NO PLATINUM AGENT)
     Route: 065
     Dates: start: 20130319, end: 20130319

REACTIONS (4)
  - Off label use [Unknown]
  - Death [Fatal]
  - Malignant neoplasm progression [Unknown]
  - Rash [Unknown]
